FAERS Safety Report 19608233 (Version 1)
Quarter: 2021Q3

REPORT INFORMATION
  Report Type: Spontaneous
  Country: US (occurrence: US)
  Receive Date: 20210723
  Receipt Date: 20210723
  Transmission Date: 20211014
  Serious: Yes (Other)
  Sender: FDA-Public Use
  Company Number: None

PATIENT
  Age: 62 Year
  Sex: Male

DRUGS (3)
  1. METOPROL SUC ER [Concomitant]
     Active Substance: METOPROLOL SUCCINATE
  2. REPATHA [Suspect]
     Active Substance: EVOLOCUMAB
     Indication: TYPE V HYPERLIPIDAEMIA
     Dosage: ?          OTHER FREQUENCY:EVERY 2 WEEKS;?
     Route: 058
     Dates: start: 20200416
  3. LEVOFLOXACIN. [Concomitant]
     Active Substance: LEVOFLOXACIN

REACTIONS (1)
  - Prostate cancer [None]
